FAERS Safety Report 18637674 (Version 3)
Quarter: 2021Q1

REPORT INFORMATION
  Report Type: Spontaneous
  Country: US (occurrence: US)
  Receive Date: 20201218
  Receipt Date: 20210308
  Transmission Date: 20210419
  Serious: Yes (Hospitalization)
  Sender: FDA-Public Use
  Company Number: US-JNJFOC-20201220713

PATIENT
  Age: 29 Year
  Sex: Female

DRUGS (8)
  1. VIIBRYD [Concomitant]
     Active Substance: VILAZODONE HYDROCHLORIDE
     Indication: DEPRESSION
     Dates: start: 20201126
  2. EFFEXOR [Concomitant]
     Active Substance: VENLAFAXINE HYDROCHLORIDE
     Indication: DEPRESSION
     Dates: start: 20201126
  3. SPRAVATO [Suspect]
     Active Substance: ESKETAMINE
     Dosage: 84MG, 8 TOTAL DOSES
     Dates: start: 20201005, end: 20201130
  4. SPRAVATO [Suspect]
     Active Substance: ESKETAMINE
     Indication: DEPRESSION
     Dosage: 56MG, 14 TOTAL DOSES
     Dates: start: 20200730, end: 20200928
  5. TRAZODONE [Concomitant]
     Active Substance: TRAZODONE HYDROCHLORIDE
     Indication: INSOMNIA
  6. SPRAVATO [Suspect]
     Active Substance: ESKETAMINE
     Dates: start: 20201208, end: 20201208
  7. KAVA ROOT [Concomitant]
     Indication: ANXIETY
  8. LAMICTAL [Concomitant]
     Active Substance: LAMOTRIGINE
     Indication: DRUG THERAPY

REACTIONS (9)
  - Memory impairment [Recovered/Resolved]
  - Hypertonia [Recovered/Resolved]
  - Tremor [Recovered/Resolved]
  - Muscle spasms [Recovered/Resolved]
  - Hyperventilation [Recovered/Resolved]
  - Aphasia [Recovered/Resolved]
  - Blood pressure increased [Recovered/Resolved]
  - Muscle rigidity [Recovered/Resolved]
  - Dissociation [Recovered/Resolved]

NARRATIVE: CASE EVENT DATE: 20201208
